FAERS Safety Report 5990535-2 (Version None)
Quarter: 2008Q4

REPORT INFORMATION
  Report Type: 
  Country: None (occurrence: None)
  Receive Date: 20081211
  Receipt Date: 20080421
  Transmission Date: 20090506
  Serious: No
  Sender: FDA-Public Use
  Company Number: US-AMGEN-KDL274415

PATIENT
  Sex: Female

DRUGS (7)
  1. ENBREL [Suspect]
     Indication: RHEUMATOID ARTHRITIS
     Route: 058
     Dates: start: 20051104
  2. METHOTREXATE [Concomitant]
     Dates: start: 20010101
  3. FOSAMAX [Concomitant]
  4. NIACIN [Concomitant]
  5. FOLIC ACID [Concomitant]
  6. CALCIUM [Concomitant]
  7. VITAMIN D [Concomitant]

REACTIONS (5)
  - INFECTION [None]
  - INFLAMMATION [None]
  - PAIN [None]
  - ROSACEA [None]
  - SINUSITIS [None]
